FAERS Safety Report 5974926-1 (Version None)
Quarter: 2008Q4

REPORT INFORMATION
  Report Type: 
  Country: None (occurrence: None)
  Receive Date: 20081202
  Receipt Date: 20081128
  Transmission Date: 20090506
  Serious: Yes (Death)
  Sender: FDA-Public Use
  Company Number: KR-PFIZER INC-2008100885

PATIENT
  Sex: Male
  Weight: 68.6 kg

DRUGS (3)
  1. VFEND [Suspect]
     Indication: ASPERGILLOSIS
     Route: 042
     Dates: start: 20060228, end: 20060307
  2. VFEND [Suspect]
     Indication: ASPERGILLOSIS
     Route: 048
     Dates: start: 20060308, end: 20060313
  3. DRUGS FOR TREATMENT OF PEPTIC ULCER [Concomitant]
     Indication: GASTRIC ULCER
     Route: 048
     Dates: start: 20060309, end: 20060313

REACTIONS (1)
  - DEATH [None]
